FAERS Safety Report 12729304 (Version 1)
Quarter: 2016Q3

REPORT INFORMATION
  Report Type: Spontaneous
  Country: US (occurrence: US)
  Receive Date: 20160908
  Receipt Date: 20160908
  Transmission Date: 20161109
  Serious: Yes (Life-Threatening, Hospitalization, Disabling)
  Sender: FDA-Public Use
  Company Number: None

PATIENT
  Age: 46 Year
  Sex: Male
  Weight: 92.25 kg

DRUGS (3)
  1. LISINOPRIL. [Suspect]
     Active Substance: LISINOPRIL
     Indication: HYPERTENSION
     Route: 048
  2. INHALERS [Concomitant]
     Active Substance: UNSPECIFIED INGREDIENT
  3. BLOOD PRESSURE PATCH [Concomitant]

REACTIONS (2)
  - Respiratory failure [None]
  - Hypersensitivity [None]

NARRATIVE: CASE EVENT DATE: 20150612
